FAERS Safety Report 24839323 (Version 2)
Quarter: 2025Q1

REPORT INFORMATION
  Report Type: Spontaneous
  Country: US (occurrence: US)
  Receive Date: 20250114
  Receipt Date: 20250115
  Transmission Date: 20250409
  Serious: No
  Sender: ELI LILLY AND COMPANY
  Company Number: US-ELI_LILLY_AND_COMPANY-US202501008092

PATIENT
  Age: 42 Year

DRUGS (3)
  1. FORTEO [Suspect]
     Active Substance: TERIPARATIDE
     Indication: Osteoporosis
     Route: 058
     Dates: start: 202501
  2. FORTEO [Suspect]
     Active Substance: TERIPARATIDE
     Route: 058
  3. FORTEO [Suspect]
     Active Substance: TERIPARATIDE
     Route: 058

REACTIONS (2)
  - Incorrect dose administered by device [Unknown]
  - Dizziness [Recovered/Resolved]

NARRATIVE: CASE EVENT DATE: 20250112
